FAERS Safety Report 6050001-5 (Version None)
Quarter: 2009Q1

REPORT INFORMATION
  Report Type: 
  Country: None (occurrence: None)
  Receive Date: 20090121
  Receipt Date: 20090108
  Transmission Date: 20090719
  Serious: Yes (Other)
  Sender: FDA-Public Use
  Company Number: JPI-P-005796

PATIENT
  Age: 56 Year
  Sex: Male
  Weight: 93.441 kg

DRUGS (4)
  1. XYREM [Suspect]
     Indication: NARCOLEPSY
     Dosage: 9 GM (4.5 GM, 2 IN 1 D), ORAL
     Route: 048
     Dates: start: 20080101
  2. MODAFINIL [Concomitant]
  3. EZETIMIBE [Concomitant]
  4. ESCITALOPRAM OXALATE [Concomitant]

REACTIONS (3)
  - DRY EYE [None]
  - RETINAL DETACHMENT [None]
  - VISION BLURRED [None]
